FAERS Safety Report 5444363-7 (Version None)
Quarter: 2007Q3

REPORT INFORMATION
  Report Type: 
  Country: None (occurrence: None)
  Receive Date: 20070904
  Receipt Date: 20070904
  Transmission Date: 20080115
  Serious: Yes (Other)
  Sender: FDA-Public Use
  Company Number: None

PATIENT
  Age: 59 Year
  Sex: Female
  Weight: 97.5234 kg

DRUGS (1)
  1. TOBRADEX [Suspect]
     Indication: EYE INFECTION
     Dosage: 2 DROPS OPHTALMIC
     Route: 047
     Dates: start: 20070727, end: 20070803

REACTIONS (3)
  - DIPLOPIA [None]
  - IMPAIRED DRIVING ABILITY [None]
  - VISION BLURRED [None]
